FAERS Safety Report 6728405-4 (Version None)
Quarter: 2010Q2

REPORT INFORMATION
  Report Type: 
  Country: None (occurrence: None)
  Receive Date: 20100517
  Receipt Date: 20100507
  Transmission Date: 20101027
  Serious: Yes (Other)
  Sender: FDA-Public Use
  Company Number: US-GENENTECH-294350

PATIENT
  Sex: Female
  Weight: 26.6 kg

DRUGS (2)
  1. NUTROPIN AQ [Suspect]
     Indication: BODY HEIGHT BELOW NORMAL
     Dosage: 1.2 MG, QD
     Route: 058
     Dates: start: 20091001
  2. NUTROPIN AQ [Suspect]
     Dosage: 1 MG, UNK
     Route: 058
     Dates: start: 20100503

REACTIONS (4)
  - CHEST PAIN [None]
  - COLD SWEAT [None]
  - HEART RATE INCREASED [None]
  - PRESYNCOPE [None]
